FAERS Safety Report 25680499 (Version 1)
Quarter: 2025Q3

REPORT INFORMATION
  Report Type: Spontaneous
  Country: US (occurrence: US)
  Receive Date: 20250814
  Receipt Date: 20250814
  Transmission Date: 20251021
  Serious: Yes (Other)
  Sender: LEO PHARM
  Company Number: US-LEO Pharma-382020

PATIENT
  Age: 62 Year
  Sex: Male

DRUGS (2)
  1. ADBRY [Suspect]
     Active Substance: TRALOKINUMAB-LDRM
     Indication: Dermatitis atopic
     Dosage: TREATMENT IS ONGOING
     Route: 058
  2. ADBRY [Suspect]
     Active Substance: TRALOKINUMAB-LDRM
     Indication: Dermatitis atopic
     Dosage: TREATMENT IS ONGOING
     Route: 058

REACTIONS (7)
  - Cardiac pacemaker insertion [Unknown]
  - Hypotension [Unknown]
  - Syncope [Unknown]
  - Amnesia [Unknown]
  - Seizure [Not Recovered/Not Resolved]
  - Road traffic accident [Unknown]
  - Diarrhoea [Unknown]
